FAERS Safety Report 24562323 (Version 2)
Quarter: 2025Q2

REPORT INFORMATION
  Report Type: Spontaneous
  Country: GB (occurrence: GB)
  Receive Date: 20241029
  Receipt Date: 20250417
  Transmission Date: 20250716
  Serious: Yes (Life-Threatening, Hospitalization)
  Sender: MYLAN
  Company Number: GB-ADVANZ PHARMA-202410008535

PATIENT
  Age: 67 Year
  Sex: Female

DRUGS (5)
  1. POMALIDOMIDE [Suspect]
     Active Substance: POMALIDOMIDE
     Indication: Plasma cell myeloma
     Dosage: 4 MILLIGRAM, QD (4 MG, QD(ON DAYS 1-21) (TEMPORARILY INTERRUPTED))
     Dates: start: 20240821, end: 20241001
  2. DEXAMETHASONE [Suspect]
     Active Substance: DEXAMETHASONE
     Indication: Plasma cell myeloma
     Dosage: 40 MILLIGRAM, QD (40 MG, QD (DAYS 1, 8, 15, 22))
     Dates: start: 20240821
  3. SPIRONOLACTONE [Suspect]
     Active Substance: SPIRONOLACTONE
     Indication: Product used for unknown indication
     Dates: start: 20240912, end: 20241002
  4. OXYCODONE [Concomitant]
     Active Substance: OXYCODONE
  5. OMEPRAZOLE [Concomitant]
     Active Substance: OMEPRAZOLE
     Dates: start: 20240913, end: 20241002

REACTIONS (4)
  - Hyponatraemia [Recovering/Resolving]
  - Condition aggravated [Recovering/Resolving]
  - Oedema peripheral [Not Recovered/Not Resolved]
  - Oedema [Unknown]

NARRATIVE: CASE EVENT DATE: 20240912
